FAERS Safety Report 15400691 (Version 1)
Quarter: 2018Q3

REPORT INFORMATION
  Report Type: Spontaneous
  Country: FR (occurrence: FR)
  Receive Date: 20180919
  Receipt Date: 20180919
  Transmission Date: 20181010
  Serious: Yes (Death, Hospitalization, Other)
  Sender: FDA-Public Use
  Company Number: FR-ACCORD-072126

PATIENT
  Age: 28 Year
  Sex: Male
  Weight: 114 kg

DRUGS (9)
  1. NOCTAMIDE [Suspect]
     Active Substance: LORMETAZEPAM
     Dosage: 2 MG, UNK
     Route: 048
  2. CLOZAPINE. [Suspect]
     Active Substance: CLOZAPINE
     Dosage: 3 TABLETS IN MORNING AND 4 TABLETS IN EVENING
     Route: 048
  3. RAMIPRIL. [Suspect]
     Active Substance: RAMIPRIL
     Route: 048
  4. ALPRAZOLAM. [Suspect]
     Active Substance: ALPRAZOLAM
     Dosage: 0.5 MG, QHS
     Route: 048
  5. LEPTICUR [Suspect]
     Active Substance: TROPATEPINE HYDROCHLORIDE
     Dosage: 1 DF, PM
     Route: 048
  6. BISOCE [Suspect]
     Active Substance: BISOPROLOL
     Dosage: 10 MG, UNK
     Route: 048
  7. NOZINAN [Suspect]
     Active Substance: LEVOMEPROMAZINE
     Dosage: 75 MG, UNK
     Route: 048
  8. LOXAPAC [Concomitant]
     Active Substance: LOXAPINE
     Dosage: 300 MG, QD
     Route: 048
     Dates: start: 20160517
  9. DOLIPRANE [Suspect]
     Active Substance: ACETAMINOPHEN
     Dosage: 2 DF, PM
     Route: 048

REACTIONS (7)
  - Alcohol poisoning [Unknown]
  - Toxicity to various agents [Fatal]
  - Cardiac arrest [Fatal]
  - Completed suicide [Fatal]
  - Cardiac septal hypertrophy [Unknown]
  - Hallucination [Unknown]
  - Anxiety [Unknown]

NARRATIVE: CASE EVENT DATE: 20160407
